FAERS Safety Report 6435302-0 (Version None)
Quarter: 2009Q4

REPORT INFORMATION
  Report Type: 
  Country: None (occurrence: None)
  Receive Date: 20091110
  Receipt Date: 20091029
  Transmission Date: 20100525
  Serious: No
  Sender: FDA-Public Use
  Company Number: FR-GENENTECH-291103

PATIENT
  Sex: Female
  Weight: 17 kg

DRUGS (1)
  1. NUTROPIN [Suspect]
     Indication: GROWTH HORMONE DEFICIENCY
     Dosage: 0.04 MG/KG, QD
     Route: 058
     Dates: start: 20090618

REACTIONS (3)
  - ASTHENIA [None]
  - COUGH [None]
  - EPISTAXIS [None]
